FAERS Safety Report 8395435 (Version 12)
Quarter: 2015Q1

REPORT INFORMATION
  Report Type: Report from Study
  Country: ES (occurrence: ES)
  Receive Date: 20120208
  Receipt Date: 20150304
  Transmission Date: 20150721
  Serious: Yes (Other)
  Sender: FDA-Public Use
  Company Number: ES-PFIZER INC-2012027185

PATIENT
  Age: 17 Month
  Sex: Male
  Weight: 19 kg

DRUGS (4)
  1. MOROCTOCOG ALFA [Suspect]
     Active Substance: ANTIHEMOPHILIC FACTOR, HUMAN RECOMBINANT RESIDUES 743-1636 DELETED
     Indication: FACTOR VIII DEFICIENCY
     Dosage: 25 IU/KG, WEEKLY
     Route: 042
     Dates: start: 20110920
  2. MOROCTOCOG ALFA [Suspect]
     Active Substance: ANTIHEMOPHILIC FACTOR, HUMAN RECOMBINANT RESIDUES 743-1636 DELETED
     Dosage: 2250 IU, THREE TIMES A WEEK
     Route: 042
     Dates: start: 20120917
  3. MOROCTOCOG ALFA [Suspect]
     Active Substance: ANTIHEMOPHILIC FACTOR, HUMAN RECOMBINANT RESIDUES 743-1636 DELETED
     Dosage: UNK
     Route: 042
     Dates: end: 20130213
  4. MOROCTOCOG ALFA [Suspect]
     Active Substance: ANTIHEMOPHILIC FACTOR, HUMAN RECOMBINANT RESIDUES 743-1636 DELETED
     Dosage: 2250 IU, THREE TIMES A WEEK
     Route: 042

REACTIONS (1)
  - Factor VIII inhibition [Not Recovered/Not Resolved]

NARRATIVE: CASE EVENT DATE: 20120110
